FAERS Safety Report 25975950 (Version 2)
Quarter: 2025Q4

REPORT INFORMATION
  Report Type: Spontaneous
  Country: US (occurrence: US)
  Receive Date: 20251029
  Receipt Date: 20251104
  Transmission Date: 20260117
  Serious: Yes (Other)
  Sender: IPSEN BIOPHARMACEUTICALS, INC.
  Company Number: US-IPSEN Group, Research and Development-2025-25929

PATIENT
  Age: 11 Year
  Sex: Female

DRUGS (1)
  1. IRINOTECAN HYDROCHLORIDE [Suspect]
     Active Substance: IRINOTECAN HYDROCHLORIDE
     Indication: Neoplasm

REACTIONS (3)
  - Malignant neoplasm progression [Unknown]
  - Oesophagitis [Unknown]
  - Off label use [Unknown]
